FAERS Safety Report 4953508-4 (Version None)
Quarter: 2006Q1

REPORT INFORMATION
  Report Type: 
  Country: None (occurrence: None)
  Receive Date: 20060324
  Receipt Date: 20060131
  Transmission Date: 20060701
  Serious: Yes (Other)
  Sender: FDA-Public Use
  Company Number: JP-ROCHE-434970

PATIENT
  Age: 47 Year
  Sex: Male
  Weight: 69 kg

DRUGS (3)
  1. TAMIFLU [Suspect]
     Route: 048
     Dates: start: 20060129, end: 20060129
  2. TAMIFLU [Suspect]
     Route: 048
     Dates: start: 20060130, end: 20060130
  3. TAMIFLU [Suspect]
     Route: 048
     Dates: start: 20060131, end: 20060131

REACTIONS (4)
  - ATRIAL FIBRILLATION [None]
  - BLOOD PRESSURE INCREASED [None]
  - SUPRAVENTRICULAR EXTRASYSTOLES [None]
  - VENTRICULAR EXTRASYSTOLES [None]
